FAERS Safety Report 20310048 (Version 2)
Quarter: 2022Q1

REPORT INFORMATION
  Report Type: Report from Study
  Country: US (occurrence: US)
  Receive Date: 20220107
  Receipt Date: 20220114
  Transmission Date: 20220423
  Serious: Yes (Death, Life-Threatening, Hospitalization)
  Sender: FDA-Public Use
  Company Number: US-BAXTER-2021BAX042546

PATIENT
  Age: 14 Year
  Sex: Female

DRUGS (14)
  1. CYCLOPHOSPHAMIDE [Suspect]
     Active Substance: CYCLOPHOSPHAMIDE
     Indication: B-cell type acute leukaemia
     Dosage: TWICE DURING INDUCTION AND CONSOLIDATION PHASE
     Route: 042
     Dates: start: 202107, end: 202112
  2. INOTUZUMAB OZOGAMICIN [Suspect]
     Active Substance: INOTUZUMAB OZOGAMICIN
     Indication: B-cell type acute leukaemia
     Dosage: COURSE3,3 DOSES 24NOV2021,01DEC2021,08DEC2021, TOTAL DOSE ADMINISTERED THIS COURSE:1.8 MG, 50 ML/HR
     Route: 042
     Dates: start: 20211124, end: 20211208
  3. INOTUZUMAB OZOGAMICIN [Suspect]
     Active Substance: INOTUZUMAB OZOGAMICIN
     Dosage: LAST DOSE ADMINISTERED PRIOR TO SAE
     Route: 042
     Dates: start: 20211208, end: 20211208
  4. METHOTREXATE SODIUM [Suspect]
     Active Substance: METHOTREXATE SODIUM
     Indication: B-cell type acute leukaemia
     Dosage: TWICE DURING INDUCTION; 4 TIMES DURING CONSOLIDATION
     Route: 042
     Dates: start: 202107
  5. METHOTREXATE SODIUM [Suspect]
     Active Substance: METHOTREXATE SODIUM
     Dosage: COURSE 3; TOTAL DOSE ADMINISTERED IN THIS COURSE: 15 MG, LAST DOSE PRIOR TO SAE
     Route: 042
     Dates: start: 20211124, end: 20211124
  6. CYTARABINE [Suspect]
     Active Substance: CYTARABINE
     Indication: B-cell type acute leukaemia
     Dosage: DAY 1, INDUCTION
     Route: 037
     Dates: start: 20210709, end: 20210709
  7. CYTARABINE [Suspect]
     Active Substance: CYTARABINE
     Dosage: DAYS 4, 11, 15, INDUCTION
     Route: 037
     Dates: start: 202107
  8. CYTARABINE [Suspect]
     Active Substance: CYTARABINE
     Dosage: DAYS 1-4, 8-11, 29-32, 36-39 (CONSOLIDATION)
     Route: 042
     Dates: end: 202112
  9. VINCRISTINE SULFATE [Suspect]
     Active Substance: VINCRISTINE SULFATE
     Indication: B-cell type acute leukaemia
     Dosage: COURSE 1, DAYS 1, 8,15,22 (INDUCTION)
     Route: 042
     Dates: start: 20210709
  10. VINCRISTINE SULFATE [Suspect]
     Active Substance: VINCRISTINE SULFATE
     Dosage: DAYS 15, 43, 50 (CONSOLIDATION)
     Route: 042
     Dates: end: 202112
  11. DAUNORUBICIN [Suspect]
     Active Substance: DAUNORUBICIN
     Indication: B-cell type acute leukaemia
     Dosage: 4 TIMES
     Route: 042
     Dates: start: 202107, end: 202112
  12. ONCASPAR [Suspect]
     Active Substance: PEGASPARGASE
     Indication: B-cell type acute leukaemia
     Dosage: INDUCTION (3 TIMES TOTAL DURING INDUCTION AND CONSOLIDATION)
     Route: 042
     Dates: start: 20210713, end: 20210713
  13. ONCASPAR [Suspect]
     Active Substance: PEGASPARGASE
     Dosage: CONSOLIDATION, (3 TIMES TOTAL DURING INDUCTION AND CONSOLIDATION)
     Route: 042
     Dates: start: 20210908, end: 20211013
  14. MERCAPTOPURINE [Suspect]
     Active Substance: MERCAPTOPURINE
     Indication: B-cell type acute leukaemia
     Route: 042
     Dates: start: 202107, end: 202112

REACTIONS (5)
  - Disseminated intravascular coagulation [Fatal]
  - Shock haemorrhagic [Fatal]
  - Multiple organ dysfunction syndrome [Fatal]
  - Second primary malignancy [Not Recovered/Not Resolved]
  - Acute myeloid leukaemia [Not Recovered/Not Resolved]

NARRATIVE: CASE EVENT DATE: 20211213
